FAERS Safety Report 6222061-X (Version None)
Quarter: 2009Q2

REPORT INFORMATION
  Report Type: 
  Country: None (occurrence: None)
  Receive Date: 20090608
  Receipt Date: 20090608
  Transmission Date: 20091009
  Serious: Yes (Other)
  Sender: FDA-Public Use
  Company Number: None

PATIENT
  Sex: Female
  Weight: 42.3 kg

DRUGS (1)
  1. NALBUPHINE [Suspect]
     Indication: PRURITUS
     Dosage: 2.5 MG  X1 IV BOLUS
     Route: 040
     Dates: start: 20090326, end: 20090326

REACTIONS (4)
  - CHEST PAIN [None]
  - FLUSHING [None]
  - INFUSION RELATED REACTION [None]
  - TACHYCARDIA [None]
